FAERS Safety Report 9788593 (Version 2)
Quarter: 2014Q3

REPORT INFORMATION
  Report Type: Spontaneous
  Country: US (occurrence: US)
  Receive Date: 20131230
  Receipt Date: 20140819
  Transmission Date: 20150326
  Serious: Yes (Hospitalization, Other)
  Sender: FDA-Public Use
  Company Number: US-009507513-1312USA012334

PATIENT
  Sex: Female
  Weight: 64 kg

DRUGS (1)
  1. NUVARING [Suspect]
     Active Substance: ETHINYL ESTRADIOL\ETONOGESTREL
     Indication: PRODUCT USED FOR UNKNOWN INDICATION
     Dosage: UNK
     Route: 067
     Dates: start: 201011

REACTIONS (6)
  - Nerve compression [Unknown]
  - Pulmonary embolism [Unknown]
  - Anxiety [Unknown]
  - Hypertension [Unknown]
  - Road traffic accident [Unknown]
  - Migraine [Unknown]

NARRATIVE: CASE EVENT DATE: 20121008
